FAERS Safety Report 7740079-2 (Version None)
Quarter: 2011Q3

REPORT INFORMATION
  Report Type: 
  Country: None (occurrence: None)
  Receive Date: 20110909
  Receipt Date: 20110830
  Transmission Date: 20111222
  Serious: Yes (Other)
  Sender: FDA-Public Use
  Company Number: TW-ROCHE-799960

PATIENT
  Age: 70 Year
  Sex: Female

DRUGS (1)
  1. MIRCERA [Suspect]
     Route: 058
     Dates: start: 20110601

REACTIONS (1)
  - HAEMATOCRIT DECREASED [None]
